FAERS Safety Report 6754364-4 (Version None)
Quarter: 2010Q2

REPORT INFORMATION
  Report Type: 
  Country: None (occurrence: None)
  Receive Date: 20100601
  Receipt Date: 20100518
  Transmission Date: 20101027
  Serious: Yes (Hospitalization)
  Sender: FDA-Public Use
  Company Number: LEO-2010-00436

PATIENT
  Age: 64 Year
  Sex: Female
  Weight: 94 kg

DRUGS (17)
  1. INNOHEP [Suspect]
     Indication: THROMBOSIS
     Dosage: 4500 IU, SUBCUTANEOUS
     Route: 058
     Dates: start: 20091006, end: 20091026
  2. ENOXAPARIN SODIUM [Suspect]
     Indication: THROMBOSIS
     Dosage: 40 MG
     Dates: start: 20090923, end: 20091005
  3. TENORMIN [Concomitant]
  4. TRIATEC PLUS (HYDROCHLOROTHIAZIDE, RAMIPRIL) [Concomitant]
  5. ZETAGAL (CEFUROXIME SODIUM) [Concomitant]
  6. LANOMYCIN (AMIKACIN) [Concomitant]
  7. MEPROLEN (OMEPRAZOLE) [Concomitant]
  8. CRUZAFEN (ONDANSETRON) [Concomitant]
  9. APOTEL (PARACETAMOL) [Concomitant]
  10. OXALGAN (TRAMADOL HYDROCHLORIDE) [Concomitant]
  11. EPREX [Concomitant]
  12. LEGOFER (FERRIPROTINATE) [Concomitant]
  13. MAALOX (MAGNESIUM HYDROXIDE, ALUMINIUM HYDROXIDE) [Concomitant]
  14. PRIMPERAN ELIXIR [Concomitant]
  15. ULTRA LEVURE (YEAST DRIED) [Concomitant]
  16. LEXOTANIL (BROMAZEPAM) [Concomitant]
  17. CASTOR OIL (RICINUS COMMUNIS OIL) [Concomitant]

REACTIONS (7)
  - ABDOMINAL PAIN [None]
  - BLOOD BILIRUBIN INCREASED [None]
  - BLOOD POTASSIUM DECREASED [None]
  - BLOOD UREA INCREASED [None]
  - INFECTED CYST [None]
  - LABORATORY TEST ABNORMAL [None]
  - RED BLOOD CELL SEDIMENTATION RATE INCREASED [None]
